FAERS Safety Report 18407693 (Version 1)
Quarter: 2020Q4

REPORT INFORMATION
  Report Type: Spontaneous
  Country: DE (occurrence: DE)
  Receive Date: 20201021
  Receipt Date: 20201021
  Transmission Date: 20210114
  Serious: Yes (Hospitalization)
  Sender: FDA-Public Use
  Company Number: DE-DRREDDYS-GER/GER/20/0128064

PATIENT
  Age: 81 Year
  Sex: Male

DRUGS (2)
  1. CETIRIZINE [Suspect]
     Active Substance: CETIRIZINE HYDROCHLORIDE
     Indication: ACARODERMATITIS
     Dosage: TABLET
     Dates: start: 2017
  2. CLOBETASOL [Suspect]
     Active Substance: CLOBETASOL
     Indication: ACARODERMATITIS
     Dosage: UNKNOWN
     Dates: start: 2017

REACTIONS (7)
  - Rash [Unknown]
  - Off label use [Unknown]
  - Sleep disorder [Unknown]
  - Condition aggravated [Unknown]
  - Product use in unapproved indication [Unknown]
  - Acarodermatitis [Unknown]
  - Pruritus [Unknown]

NARRATIVE: CASE EVENT DATE: 2017
